FAERS Safety Report 25120159 (Version 1)
Quarter: 2025Q1

REPORT INFORMATION
  Report Type: Report from Study
  Country: ES (occurrence: ES)
  Receive Date: 20250325
  Receipt Date: 20250325
  Transmission Date: 20250409
  Serious: Yes (Hospitalization)
  Sender: MYLAN
  Company Number: ES-MYLANLABS-2025M1025484

PATIENT
  Age: 39 Year
  Sex: Female

DRUGS (8)
  1. TOBI [Suspect]
     Active Substance: TOBRAMYCIN
     Indication: Haemophilus infection
     Dosage: 300 MILLIGRAM, BID (EVERY 12H) RESPIRATORY INHALATION
  2. TOBI [Suspect]
     Active Substance: TOBRAMYCIN
     Indication: Staphylococcal infection
     Dosage: 300 MILLIGRAM, BID (EVERY 12H) RESPIRATORY INHALATION
     Route: 055
  3. TOBI [Suspect]
     Active Substance: TOBRAMYCIN
     Dosage: 300 MILLIGRAM, BID (EVERY 12H) RESPIRATORY INHALATION
     Route: 055
  4. TOBI [Suspect]
     Active Substance: TOBRAMYCIN
     Dosage: 300 MILLIGRAM, BID (EVERY 12H) RESPIRATORY INHALATION
  5. CLOXACILLIN [Concomitant]
     Active Substance: CLOXACILLIN
     Indication: Haemophilus infection
  6. CLOXACILLIN [Concomitant]
     Active Substance: CLOXACILLIN
     Indication: Staphylococcal infection
     Route: 065
  7. CLOXACILLIN [Concomitant]
     Active Substance: CLOXACILLIN
     Route: 065
  8. CLOXACILLIN [Concomitant]
     Active Substance: CLOXACILLIN

REACTIONS (1)
  - Acute kidney injury [Unknown]
